FAERS Safety Report 12413023 (Version 1)
Quarter: 2016Q2

REPORT INFORMATION
  Report Type: Report from Study
  Country: US (occurrence: US)
  Receive Date: 20160527
  Receipt Date: 20160527
  Transmission Date: 20160815
  Serious: Yes (Disabling, Other)
  Sender: FDA-Public Use
  Company Number: US-009507513-1605USA012345

PATIENT
  Age: 51 Year
  Sex: Female

DRUGS (3)
  1. NOVOLOG [Concomitant]
     Active Substance: INSULIN ASPART
     Indication: DIABETES MELLITUS
     Dosage: UNK
  2. LANTUS [Concomitant]
     Active Substance: INSULIN GLARGINE
     Indication: DIABETES MELLITUS
     Dosage: UNK
     Dates: end: 20160517
  3. JANUVIA [Suspect]
     Active Substance: SITAGLIPTIN PHOSPHATE
     Indication: DIABETES MELLITUS
     Dosage: UNK
     Route: 048

REACTIONS (6)
  - Drug ineffective [Unknown]
  - Pancreatitis [Unknown]
  - Wound [Unknown]
  - Drug dependence [Unknown]
  - Bedridden [Unknown]
  - Infection [Unknown]

NARRATIVE: CASE EVENT DATE: 201504
